FAERS Safety Report 9825843 (Version 1)
Quarter: 2013Q4

REPORT INFORMATION
  Report Type: Spontaneous
  Country: US (occurrence: None)
  Receive Date: 20131101
  Receipt Date: 20131101
  Transmission Date: 20140711
  Serious: Yes (Other)
  Sender: FDA-Public Use
  Company Number: ALL1-2013-00496

PATIENT
  Sex: Male

DRUGS (1)
  1. INTUNIV [Suspect]
     Route: 048

REACTIONS (1)
  - Convulsion [None]
